FAERS Safety Report 7529410-0 (Version None)
Quarter: 2011Q2

REPORT INFORMATION
  Report Type: 
  Country: None (occurrence: None)
  Receive Date: 20110607
  Receipt Date: 20110530
  Transmission Date: 20111010
  Serious: Yes (Other)
  Sender: FDA-Public Use
  Company Number: NL-ASTRAZENECA-2011SE33317

PATIENT

DRUGS (2)
  1. PROPOFOL [Suspect]
     Indication: ANAESTHESIA
  2. LOCAL ANAESTHESIA [Concomitant]

REACTIONS (1)
  - EPILEPSY [None]
